FAERS Safety Report 7098726-7 (Version None)
Quarter: 2010Q4

REPORT INFORMATION
  Report Type: 
  Country: None (occurrence: None)
  Receive Date: 20101112
  Receipt Date: 20101108
  Transmission Date: 20110411
  Serious: Yes (Hospitalization)
  Sender: FDA-Public Use
  Company Number: IE-ROCHE-649463

PATIENT
  Sex: Female
  Weight: 61 kg

DRUGS (6)
  1. TRASTUZUMAB [Suspect]
     Dosage: DOSE LEVEL: 6 MG/KG; FORM: VIALS, LAST DOSE PRIOR TO SAE: 21 JULY 2009
     Route: 042
     Dates: start: 20090331, end: 20090810
  2. TRASTUZUMAB [Suspect]
     Route: 042
     Dates: start: 20090818
  3. DOCETAXEL [Suspect]
     Dosage: DOSE LEVEL: 75 MG/M2; FORM: VIALS, LAST DOSE PRIOR TO SAE: 21 JUL 2009
     Route: 042
     Dates: start: 20090331
  4. CARBOPLATIN [Suspect]
     Dosage: DOSE LEVEL: 6 AUC; DOSAGE FORM: VIALS, LAST DOSE PRIOR TO SAE: 21 JUL 2009
     Route: 042
     Dates: start: 20090331
  5. ZOLPIDEM TARTRATE [Concomitant]
     Dates: start: 20090401
  6. MOUTHWASH NOS [Concomitant]
     Dosage: DRUG NAME REPORTED AS SALINE MOUTHWASH

REACTIONS (1)
  - THROMBOPHLEBITIS [None]
